FAERS Safety Report 14358178 (Version 1)
Quarter: 2018Q1

REPORT INFORMATION
  Report Type: Spontaneous
  Country: US (occurrence: US)
  Receive Date: 20180105
  Receipt Date: 20180105
  Transmission Date: 20180509
  Serious: Yes (Hospitalization)
  Sender: FDA-Public Use
  Company Number: US-FRESENIUS KABI-FK201800164

PATIENT
  Age: 74 Year
  Sex: Female

DRUGS (1)
  1. ROPIVACAINE (MANUFACTURER UNKNOWN) [Suspect]
     Active Substance: ROPIVACAINE
     Indication: NERVE BLOCK
     Route: 065

REACTIONS (5)
  - Cardiac arrest [Unknown]
  - Cardiogenic shock [Unknown]
  - Apnoea [Unknown]
  - Stress cardiomyopathy [Recovering/Resolving]
  - Seizure [Unknown]
